FAERS Safety Report 4809343-0 (Version None)
Quarter: 2005Q4

REPORT INFORMATION
  Report Type: 
  Country: None (occurrence: None)
  Receive Date: 20051021
  Receipt Date: 20020315
  Transmission Date: 20060501
  Serious: No
  Sender: FDA-Public Use
  Company Number: USA020312551

PATIENT
  Age: 36 Year
  Sex: Male

DRUGS (8)
  1. ZYPREXA [Suspect]
     Dates: end: 20020210
  2. TRIZIVIR [Concomitant]
  3. BACTRIM [Concomitant]
  4. MIRAPEX (MIRAPEX) [Concomitant]
  5. CELEXA [Concomitant]
  6. TRAZODONE HCL [Concomitant]
  7. PERCOCET [Concomitant]
  8. PRILOSEC [Concomitant]

REACTIONS (2)
  - CD4 LYMPHOCYTES DECREASED [None]
  - LYMPHOPENIA [None]
